FAERS Safety Report 8515112-0 (Version None)
Quarter: 2012Q3

REPORT INFORMATION
  Report Type: 
  Country: None (occurrence: None)
  Receive Date: 20120717
  Receipt Date: 20120710
  Transmission Date: 20120928
  Serious: Yes (Other)
  Sender: FDA-Public Use
  Company Number: US-PFIZER INC-2012165450

PATIENT
  Sex: Female

DRUGS (4)
  1. ALBUTEROL [Concomitant]
     Indication: CHRONIC OBSTRUCTIVE PULMONARY DISEASE
     Dosage: UNK
  2. SOLU-MEDROL [Suspect]
     Indication: DYSPNOEA
     Dosage: UNK, AS NEEDED
     Route: 042
  3. SOLU-MEDROL [Suspect]
     Dosage: 125 MG, AS NEEDED
     Route: 042
     Dates: start: 20120707
  4. ADVAIR DISKUS 100/50 [Concomitant]
     Indication: CHRONIC OBSTRUCTIVE PULMONARY DISEASE
     Dosage: UNK

REACTIONS (2)
  - DYSPNOEA [None]
  - ANAPHYLACTIC REACTION [None]
